FAERS Safety Report 16711455 (Version 1)
Quarter: 2019Q3

REPORT INFORMATION
  Report Type: Spontaneous
  Country: US (occurrence: US)
  Receive Date: 20190816
  Receipt Date: 20190816
  Transmission Date: 20191004
  Serious: No
  Sender: FDA-Public Use
  Company Number: US-ASTRAZENECA-2019SF04945

PATIENT
  Sex: Female
  Weight: 87.5 kg

DRUGS (1)
  1. TAGRISSO [Suspect]
     Active Substance: OSIMERTINIB
     Indication: MALIGNANT NEOPLASM PROGRESSION
     Route: 048
     Dates: start: 20180727

REACTIONS (3)
  - Ulcer [Unknown]
  - Acne [Unknown]
  - Product dose omission [Unknown]
